FAERS Safety Report 11622920 (Version 2)
Quarter: 2015Q4

REPORT INFORMATION
  Report Type: Spontaneous
  Country: US (occurrence: US)
  Receive Date: 20151013
  Receipt Date: 20151126
  Transmission Date: 20160304
  Serious: No
  Sender: FDA-Public Use
  Company Number: US-JNJFOC-20150915929

PATIENT
  Age: 94 Year
  Sex: Female
  Weight: 60.78 kg

DRUGS (9)
  1. CATAPRES [Concomitant]
     Active Substance: CLONIDINE HYDROCHLORIDE
     Indication: HYPERTENSION
     Dosage: 2 YEARS
     Route: 065
     Dates: start: 201307
  2. FISH OIL [Concomitant]
     Active Substance: FISH OIL
     Indication: NUTRITIONAL SUPPLEMENTATION
     Dosage: 2.5 YEARS
     Route: 065
  3. OCUVITE NOS [Concomitant]
     Indication: EYE DISORDER
     Dosage: YEARS
     Route: 065
     Dates: start: 1991
  4. TYLENOL EXTRA STRENGTH [Suspect]
     Active Substance: ACETAMINOPHEN
     Indication: BACK PAIN
     Dosage: 500 MG, 2 TABLETS, EVERY MORNING
     Route: 048
     Dates: start: 201507
  5. CALCIUM [Concomitant]
     Active Substance: CALCIUM
     Indication: NUTRITIONAL SUPPLEMENTATION
     Dosage: 2 1/2 YEARS
     Route: 065
  6. FISH OIL [Concomitant]
     Active Substance: FISH OIL
     Indication: HEART RATE IRREGULAR
     Dosage: 2.5 YEARS
     Route: 065
  7. CELESTONE PHOSPHATE [Concomitant]
     Indication: INJECTION SITE PAIN
     Dosage: 2 MONTHS AGO
     Route: 065
     Dates: start: 20150713
  8. CITRACAL [Concomitant]
     Active Substance: CALCIUM CITRATE
     Indication: BONE DISORDER
     Route: 065
     Dates: start: 1991
  9. OCUVITE NOS [Concomitant]
     Indication: NUTRITIONAL SUPPLEMENTATION
     Dosage: YEARS
     Route: 065
     Dates: start: 1991

REACTIONS (2)
  - Drug effect incomplete [Unknown]
  - Incorrect drug administration duration [Unknown]
